FAERS Safety Report 23093784 (Version 2)
Quarter: 2023Q4

REPORT INFORMATION
  Report Type: Report from Study
  Country: CA (occurrence: CA)
  Receive Date: 20231023
  Receipt Date: 20231115
  Transmission Date: 20240109
  Serious: Yes (Hospitalization)
  Sender: FDA-Public Use
  Company Number: CA-ABBVIE-5457904

PATIENT
  Sex: Male
  Weight: 93 kg

DRUGS (2)
  1. VENCLEXTA [Suspect]
     Active Substance: VENETOCLAX
     Indication: Acute myeloid leukaemia
     Route: 048
     Dates: start: 20230913
  2. AZACITIDINE [Concomitant]
     Active Substance: AZACITIDINE
     Indication: Acute myeloid leukaemia
     Dosage: FREQUENCY TEXT: DAY 1- 7 EACH 28 DAYS CYCLE
     Dates: start: 20230913

REACTIONS (2)
  - Sialoadenitis [Recovered/Resolved]
  - Fat tissue increased [Unknown]

NARRATIVE: CASE EVENT DATE: 20230101
